FAERS Safety Report 14528977 (Version 1)
Quarter: 2018Q1

REPORT INFORMATION
  Report Type: Spontaneous
  Country: US (occurrence: US)
  Receive Date: 20180213
  Receipt Date: 20180213
  Transmission Date: 20180509
  Serious: Yes (Death)
  Sender: FDA-Public Use
  Company Number: None

PATIENT
  Age: 55 Year
  Sex: Female

DRUGS (23)
  1. CHLORTHALID [Concomitant]
  2. WELCHOL [Concomitant]
     Active Substance: COLESEVELAM HYDROCHLORIDE
  3. ENBREL [Suspect]
     Active Substance: ETANERCEPT
     Indication: RHEUMATOID ARTHRITIS
     Dosage: 1 PEN EVERY WEEK SUBCUTANEOUSLY
     Route: 058
     Dates: start: 20171108, end: 2018
  4. HYDROXYX HCL [Concomitant]
  5. GABAPENTIN. [Concomitant]
     Active Substance: GABAPENTIN
  6. ZOLPIDEM [Concomitant]
     Active Substance: ZOLPIDEM\ZOLPIDEM TARTRATE
  7. METHYLPHENID [Concomitant]
     Active Substance: METHYLPHENIDATE
  8. ESOMEPRA MAG [Concomitant]
  9. POT CHLORIDE [Concomitant]
     Active Substance: POTASSIUM CHLORIDE
  10. PANTOPRAZOLE [Concomitant]
     Active Substance: PANTOPRAZOLE
  11. CEPHALEXIN. [Concomitant]
     Active Substance: CEPHALEXIN
  12. FOLIC ACID. [Concomitant]
     Active Substance: FOLIC ACID
  13. TRINTELLIX [Concomitant]
     Active Substance: VORTIOXETINE HYDROBROMIDE
  14. RANITIDINE. [Concomitant]
     Active Substance: RANITIDINE
  15. PROAIR HFA [Concomitant]
     Active Substance: ALBUTEROL SULFATE
  16. ADVAIR DISKU [Concomitant]
  17. METOPROL SUC [Concomitant]
  18. ONDANSETRON [Concomitant]
     Active Substance: ONDANSETRON
  19. TRIAMCINOLON PST [Concomitant]
  20. AMITRIPTYLIN [Concomitant]
     Active Substance: AMITRIPTYLINE
  21. FLUOXETINE [Concomitant]
     Active Substance: FLUOXETINE HYDROCHLORIDE
  22. LITHIUM CARB [Concomitant]
     Active Substance: LITHIUM CARBONATE
  23. ROPINIROLE. [Concomitant]
     Active Substance: ROPINIROLE

REACTIONS (1)
  - Death [None]
